FAERS Safety Report 9271020 (Version 1)
Quarter: 2013Q2

REPORT INFORMATION
  Report Type: Spontaneous
  Country: FR (occurrence: FR)
  Receive Date: 20130506
  Receipt Date: 20130506
  Transmission Date: 20140414
  Serious: Yes (Other)
  Sender: FDA-Public Use
  Company Number: FR-JNJFOC-20130416491

PATIENT
  Age: 81 Year
  Sex: Female

DRUGS (8)
  1. XARELTO [Suspect]
     Indication: CEREBROVASCULAR ACCIDENT PROPHYLAXIS
     Route: 048
     Dates: start: 201209, end: 20121001
  2. XARELTO [Suspect]
     Indication: ATRIAL FIBRILLATION
     Route: 048
     Dates: start: 201209, end: 20121001
  3. LEVOTHYROX [Concomitant]
     Route: 065
  4. FLECAINE [Concomitant]
     Route: 065
  5. SYMBICORT [Concomitant]
     Route: 065
  6. SPIRIVA [Concomitant]
     Route: 055
  7. ZESTRIL [Concomitant]
     Route: 065
  8. DILTIAZEM [Concomitant]
     Route: 065

REACTIONS (1)
  - Erythema multiforme [Recovered/Resolved]
